FAERS Safety Report 6345995-4 (Version None)
Quarter: 2009Q3

REPORT INFORMATION
  Report Type: 
  Country: None (occurrence: None)
  Receive Date: 20090909
  Receipt Date: 20090904
  Transmission Date: 20100115
  Serious: No
  Sender: FDA-Public Use
  Company Number: US-JNJFOC-20090902214

PATIENT
  Sex: Male
  Weight: 95.26 kg

DRUGS (2)
  1. DURAGESIC-100 [Suspect]
     Indication: POST PROCEDURAL COMPLICATION
     Dosage: 100 UG/HR PLUS 25 UG/HR
     Route: 062
  2. UNKNOWN MEDICATION [Concomitant]
     Indication: POST PROCEDURAL COMPLICATION
     Route: 065

REACTIONS (3)
  - DEVICE ADHESION ISSUE [None]
  - INAPPROPRIATE SCHEDULE OF DRUG ADMINISTRATION [None]
  - WRONG TECHNIQUE IN DRUG USAGE PROCESS [None]
